FAERS Safety Report 19310507 (Version 1)
Quarter: 2021Q2

REPORT INFORMATION
  Report Type: Spontaneous
  Country: RO (occurrence: RO)
  Receive Date: 20210526
  Receipt Date: 20210526
  Transmission Date: 20210717
  Serious: Yes (Death)
  Sender: FDA-Public Use
  Company Number: RO-ELI_LILLY_AND_COMPANY-RO202105009697

PATIENT
  Age: 76 Year
  Sex: Female

DRUGS (1)
  1. OLUMIANT [Suspect]
     Active Substance: BARICITINIB
     Indication: RHEUMATOID ARTHRITIS
     Dosage: 2 MG, UNKNOWN
     Route: 065
     Dates: start: 20201015

REACTIONS (4)
  - Candida pneumonia [Fatal]
  - Peritonitis [Fatal]
  - Pneumonia bacterial [Fatal]
  - Diverticulum intestinal [Fatal]

NARRATIVE: CASE EVENT DATE: 20210425
